FAERS Safety Report 18874350 (Version 1)
Quarter: 2021Q1

REPORT INFORMATION
  Report Type: Spontaneous
  Country: DE (occurrence: DE)
  Receive Date: 20210210
  Receipt Date: 20210210
  Transmission Date: 20210420
  Serious: Yes (Other)
  Sender: FDA-Public Use
  Company Number: DE-PFIZER INC-2021103631

PATIENT
  Sex: Female
  Weight: 100 kg

DRUGS (24)
  1. MIRTAZAPINE. [Suspect]
     Active Substance: MIRTAZAPINE
     Dosage: 1 DF, 1X/DAY
     Route: 065
  2. DULOXETINE. [Suspect]
     Active Substance: DULOXETINE
     Indication: FIBROMYALGIA
  3. MYDOCALM [TOLPERISONE HYDROCHLORIDE] [Concomitant]
     Active Substance: TOLPERISONE HYDROCHLORIDE
     Dosage: 1 DF, 1X/DAY
     Route: 065
  4. LOTRICOMB [Concomitant]
     Active Substance: BETAMETHASONE DIPROPIONATE\CLOTRIMAZOLE
     Dosage: UNK
     Route: 065
  5. RAMIPRIL. [Concomitant]
     Active Substance: RAMIPRIL
     Dosage: 1 DF, 1X/DAY
     Route: 065
  6. RANITIDIN 1 A PHARMA [Suspect]
     Active Substance: RANITIDINE HYDROCHLORIDE
     Indication: GASTROOESOPHAGEAL REFLUX DISEASE
     Dosage: 300 MG
     Route: 065
     Dates: start: 201510, end: 201703
  7. LUVASED [ETHANOL;HUMULUS LUPULUS;VALERIANA OFFICINALIS ROOT] [Concomitant]
     Dosage: UNK
     Route: 065
  8. RANITIDIN 1 A PHARMA [Suspect]
     Active Substance: RANITIDINE HYDROCHLORIDE
     Dosage: 300 MG
     Route: 065
     Dates: start: 201906, end: 202001
  9. METAMIZOLE [Concomitant]
     Active Substance: METAMIZOLE
     Dosage: 1 DF, 1X/DAY
     Route: 065
  10. REMIFEMIN PLUS [Concomitant]
     Active Substance: BLACK COHOSH\HERBALS\HYPERICUM PERFORATUM
     Dosage: 1 DF, 2X/DAY
     Route: 065
  11. PREGABALIN. [Concomitant]
     Active Substance: PREGABALIN
     Dosage: UNK
     Route: 065
  12. NALOXONE HYDROCHLORIDE/TILIDINE HYDROCHLORIDE [Suspect]
     Active Substance: NALOXONE HYDROCHLORIDE\TILIDINE HYDROCHLORIDE
     Indication: ARTHRALGIA
     Dosage: 4 MG, 2X/DAY
     Route: 065
  13. ANAFRANIL [Concomitant]
     Active Substance: CLOMIPRAMINE HYDROCHLORIDE
     Indication: PAIN
     Dosage: UNK
     Route: 065
  14. MAPROTILINE [Concomitant]
     Active Substance: MAPROTILINE
     Indication: PAIN
     Dosage: UNK
     Route: 065
  15. DOXEPIN HCL [Suspect]
     Active Substance: DOXEPIN HYDROCHLORIDE
     Dosage: UNK
     Route: 065
  16. RANITIDIN 1 A PHARMA [Suspect]
     Active Substance: RANITIDINE HYDROCHLORIDE
     Indication: CHRONIC GASTRITIS
     Dosage: 300 MG
     Route: 065
     Dates: start: 201710, end: 201802
  17. KATADOLON [FLUPIRTINE MALEATE] [Suspect]
     Active Substance: FLUPIRTINE MALEATE
     Dosage: UNK
     Route: 065
  18. ESOMEPRAZOLE. [Concomitant]
     Active Substance: ESOMEPRAZOLE MAGNESIUM
     Dosage: 1 DF, 1X/DAY
     Route: 065
  19. DUSPATAL [MEBEVERINE EMBONATE] [Concomitant]
     Dosage: 1 DF, 3X/DAY
     Route: 065
  20. DIAZEPAM. [Concomitant]
     Active Substance: DIAZEPAM
     Dosage: UNK
     Route: 065
  21. RANITIDIN 1 A PHARMA [Suspect]
     Active Substance: RANITIDINE HYDROCHLORIDE
     Indication: HIATUS HERNIA
     Dosage: 300 MG
     Route: 065
     Dates: start: 1999
  22. PANTOPRAZOLE [Concomitant]
     Active Substance: PANTOPRAZOLE
     Dosage: 1 DF, 1X/DAY
     Route: 065
  23. DICLOFENAC [Concomitant]
     Active Substance: DICLOFENAC
     Dosage: 1 DF, 2X/DAY
     Route: 065
  24. DULOXETINE. [Suspect]
     Active Substance: DULOXETINE
     Indication: PAIN
     Dosage: 60 MG, 1X/DAY
     Route: 065
     Dates: end: 201010

REACTIONS (12)
  - Pyrexia [Unknown]
  - Arthropod bite [Unknown]
  - Cough [Unknown]
  - Bronchitis [Unknown]
  - Fatigue [Unknown]
  - Nasopharyngitis [Unknown]
  - Pain [Unknown]
  - Lyme disease [Unknown]
  - Tinea pedis [Unknown]
  - Syncope [Unknown]
  - Sputum discoloured [Unknown]
  - Sinusitis [Unknown]

NARRATIVE: CASE EVENT DATE: 2001
